FAERS Safety Report 23084273 (Version 2)
Quarter: 2023Q4

REPORT INFORMATION
  Report Type: Report from Study
  Country: US (occurrence: US)
  Receive Date: 20231019
  Receipt Date: 20231025
  Transmission Date: 20240110
  Serious: No
  Sender: FDA-Public Use
  Company Number: US-002147023-NVSC2023US220059

PATIENT
  Sex: Female

DRUGS (1)
  1. LEQVIO [Suspect]
     Active Substance: INCLISIRAN SODIUM
     Indication: Product used for unknown indication
     Dosage: UNK
     Route: 058
     Dates: start: 20231009

REACTIONS (8)
  - Oropharyngeal pain [Unknown]
  - Headache [Unknown]
  - Feeling abnormal [Unknown]
  - Somnolence [Unknown]
  - Pain in extremity [Unknown]
  - Injection site pain [Unknown]
  - Anxiety [Unknown]
  - Dry throat [Unknown]
